FAERS Safety Report 19673708 (Version 1)
Quarter: 2021Q3

REPORT INFORMATION
  Report Type: Spontaneous
  Country: IN (occurrence: IN)
  Receive Date: 20210807
  Receipt Date: 20210807
  Transmission Date: 20211014
  Serious: No
  Sender: FDA-Public Use
  Company Number: None

PATIENT
  Age: 31 Year
  Sex: Female

DRUGS (1)
  1. FOURDERM [CHLORHEXIDINE\CLOBETASOL\MICONAZOLE\NEOMYCIN] [Suspect]
     Active Substance: CHLORHEXIDINE\CLOBETASOL\MICONAZOLE\NEOMYCIN
     Indication: INFECTION
     Route: 061

REACTIONS (3)
  - Therapeutic product ineffective for unapproved indication [None]
  - Product use in unapproved indication [None]
  - Adverse drug reaction [None]

NARRATIVE: CASE EVENT DATE: 20210105
